FAERS Safety Report 21028654 (Version 4)
Quarter: 2022Q3

REPORT INFORMATION
  Report Type: Spontaneous
  Country: US (occurrence: US)
  Receive Date: 20220630
  Receipt Date: 20220815
  Transmission Date: 20221027
  Serious: No
  Sender: FDA-Public Use
  Company Number: US-PFIZER INC-202200851111

PATIENT
  Age: 21 Year
  Sex: Male
  Weight: 115.67 kg

DRUGS (3)
  1. GENOTROPIN [Suspect]
     Active Substance: SOMATROPIN
     Dosage: 0.2MG AND 0.4MG ALTERNATING INJECTED EVERY DAY
  2. GENOTROPIN [Suspect]
     Active Substance: SOMATROPIN
     Dosage: 0.2MG AND 0.4MG ALTERNATING INJECTED EVERY DAY.
  3. OZEMPIC [Concomitant]
     Active Substance: SEMAGLUTIDE
     Indication: Blood glucose abnormal
     Dosage: 0.5 MG, WEEKLY {0.5MG INJECTED EVERY WEEK ONCE WEEKLY EVERY THURSDAY}

REACTIONS (4)
  - Poor quality device used [Not Recovered/Not Resolved]
  - Device mechanical issue [Not Recovered/Not Resolved]
  - Expired device used [Not Recovered/Not Resolved]
  - Device use error [Not Recovered/Not Resolved]

NARRATIVE: CASE EVENT DATE: 20220101
